FAERS Safety Report 5734401-6 (Version None)
Quarter: 2008Q2

REPORT INFORMATION
  Report Type: 
  Country: None (occurrence: None)
  Receive Date: 20080508
  Receipt Date: 20080508
  Transmission Date: 20081010
  Serious: Yes (Other)
  Sender: FDA-Public Use
  Company Number: None

PATIENT
  Sex: Female
  Weight: 90.7194 kg

DRUGS (1)
  1. CREST PRO-HEALTH PROCTER AND GAMBLE [Suspect]
     Indication: DENTAL CARE
     Dosage: MOUTHFUL TWICE DAILY PO
     Route: 048
     Dates: start: 20070701, end: 20080507

REACTIONS (2)
  - GLOSSITIS [None]
  - TOOTH DISCOLOURATION [None]
